FAERS Safety Report 19877407 (Version 1)
Quarter: 2021Q3

REPORT INFORMATION
  Report Type: Spontaneous
  Country: IT (occurrence: IT)
  Receive Date: 20210924
  Receipt Date: 20210924
  Transmission Date: 20211014
  Serious: Yes (Other)
  Sender: FDA-Public Use
  Company Number: IT-BAXTER-2021BAX026385

PATIENT
  Age: 66 Year
  Sex: Male

DRUGS (2)
  1. ENDOXAN BAXTER [Suspect]
     Active Substance: CYCLOPHOSPHAMIDE
     Indication: MYXOFIBROSARCOMA
     Dosage: 4500 MILLIGRAM CYCLICAL
     Route: 042
     Dates: start: 20210309, end: 20210423
  2. EPIRUBICIN HYDROCHLORIDE. [Suspect]
     Active Substance: EPIRUBICIN HYDROCHLORIDE
     Indication: MYXOFIBROSARCOMA
     Dosage: 80 MILLIGRAM CYCLICAL
     Route: 042
     Dates: start: 20210309, end: 20210423

REACTIONS (4)
  - Off label use [None]
  - Thrombocytopenia [None]
  - Anaemia [None]
  - Febrile neutropenia [None]

NARRATIVE: CASE EVENT DATE: 20210430
